FAERS Safety Report 8432223-9 (Version None)
Quarter: 2012Q2

REPORT INFORMATION
  Report Type: 
  Country: None (occurrence: None)
  Receive Date: 20120607
  Receipt Date: 20120522
  Transmission Date: 20120825
  Serious: Yes (Hospitalization)
  Sender: FDA-Public Use
  Company Number: FK201201288

PATIENT
  Age: 81 Year
  Sex: Male

DRUGS (5)
  1. PROPOFOL [Suspect]
     Indication: INDUCTION OF ANAESTHESIA
     Dosage: INTRAVENOUS (NOT OTHERWISE SPECIFIED)
     Route: 042
     Dates: start: 20120403, end: 20120403
  2. ULTIVA [Suspect]
     Indication: INDUCTION AND MAINTENANCE OF ANAESTHESIA
     Dosage: INTRAVENOUS (NOT OTHERWISE SPECIFIED)
     Route: 042
     Dates: start: 20120403, end: 20120403
  3. PERINDOPRIL ERBUMINE [Suspect]
     Indication: HYPERTENSION
     Dosage: ORAL
     Route: 048
     Dates: start: 20120403, end: 20120403
  4. ROCURONIUM BROMIDE [Suspect]
     Indication: INDUCTION AND MAINTENANCE OF ANAESTHESIA
     Dosage: INTRAVENOUS (NOT OTHERWISE SPECIFIED)
     Route: 042
     Dates: start: 20120403, end: 20120403
  5. PERFALGAN (PARACETAMOL) (PARACETAMOL) [Concomitant]

REACTIONS (1)
  - TONGUE OEDEMA [None]
